FAERS Safety Report 15655894 (Version 1)
Quarter: 2018Q4

REPORT INFORMATION
  Report Type: Spontaneous
  Country: PT (occurrence: PT)
  Receive Date: 20181126
  Receipt Date: 20181126
  Transmission Date: 20190205
  Serious: Yes (Other)
  Sender: FDA-Public Use
  Company Number: PT-GLAXOSMITHKLINE-PT2018GSK211921

PATIENT
  Age: 43 Year
  Sex: Male

DRUGS (3)
  1. MALARONE [Suspect]
     Active Substance: ATOVAQUONE\PROGUANIL HYDROCHLORIDE
     Indication: INFECTION PARASITIC
     Dosage: UNK
  2. ZITHROMAX [Suspect]
     Active Substance: AZITHROMYCIN DIHYDRATE
     Indication: INFECTION
     Dosage: 250 MG, QD
     Route: 048
  3. FASIGYN [Suspect]
     Active Substance: TINIDAZOLE
     Indication: INFECTION
     Dosage: 500 MG, Z, 2 TO 3 PER WEEK
     Route: 048

REACTIONS (5)
  - Product use in unapproved indication [Unknown]
  - Metal poisoning [Unknown]
  - Blood heavy metal abnormal [Unknown]
  - Off label use [Unknown]
  - Pain in extremity [Unknown]
